FAERS Safety Report 4933005-2 (Version None)
Quarter: 2006Q1

REPORT INFORMATION
  Report Type: 
  Country: None (occurrence: None)
  Receive Date: 20060306
  Receipt Date: 20051207
  Transmission Date: 20060701
  Serious: Yes (Hospitalization)
  Sender: FDA-Public Use
  Company Number: PHBS2005JP18259

PATIENT
  Age: 68 Year
  Sex: Male

DRUGS (9)
  1. DIOVAN [Suspect]
     Indication: HYPERTENSION
     Dosage: 80 MG/DAY
     Route: 048
     Dates: start: 20051013, end: 20051112
  2. GASTER D [Concomitant]
     Dosage: 20 MG, UNK
     Route: 048
     Dates: start: 20040129
  3. WARFARIN SODIUM [Concomitant]
     Dosage: 3 MG, UNK
     Route: 048
     Dates: start: 20040129
  4. BASEN [Concomitant]
     Dosage: 0.6 MG, UNK
     Route: 048
     Dates: start: 20040129
  5. SELBEX [Concomitant]
     Dosage: 150 MG, UNK
     Route: 048
     Dates: start: 20040129
  6. MAGNESIUM OXIDE [Concomitant]
     Dosage: 1 G, UNK
     Route: 048
     Dates: start: 20040129
  7. ALOSENN [Concomitant]
     Dosage: 0.5 G, UNK
     Route: 048
     Dates: start: 20040129
  8. CONIEL [Concomitant]
     Route: 048
     Dates: start: 20050314, end: 20051013
  9. TANATRIL [Concomitant]
     Dates: start: 20051130

REACTIONS (2)
  - FEELING ABNORMAL [None]
  - LOSS OF CONSCIOUSNESS [None]
